FAERS Safety Report 13974151 (Version 1)
Quarter: 2017Q3

REPORT INFORMATION
  Report Type: Spontaneous
  Country: US (occurrence: US)
  Receive Date: 20170915
  Receipt Date: 20170915
  Transmission Date: 20171128
  Serious: No
  Sender: FDA-Public Use
  Company Number: US-BAUSCH-BL-2017-008105

PATIENT
  Sex: Female

DRUGS (3)
  1. FLUOROURACIL 5% [Suspect]
     Active Substance: FLUOROURACIL
     Route: 061
     Dates: start: 201701, end: 20170228
  2. FLUOROURACIL 5% [Suspect]
     Active Substance: FLUOROURACIL
     Indication: ACTINIC KERATOSIS
     Route: 061
     Dates: start: 201608
  3. FLUOROURACIL 5% [Suspect]
     Active Substance: FLUOROURACIL
     Dosage: IN THE FALL
     Route: 061

REACTIONS (1)
  - Rash pruritic [Not Recovered/Not Resolved]

NARRATIVE: CASE EVENT DATE: 201702
